FAERS Safety Report 8801099 (Version 1)
Quarter: 2012Q4

REPORT INFORMATION
  Report Type: 
  Country: BR (occurrence: BR)
  Receive Date: 20120921
  Receipt Date: 20120921
  Transmission Date: 20130627
  Serious: Yes (Other)
  Sender: FDA-Public Use
  Company Number: BR-BRISTOL-MYERS SQUIBB COMPANY-16966566

PATIENT
  Age: 78 Year
  Sex: Female
  Weight: 83 kg

DRUGS (5)
  1. APROZIDE [Suspect]
     Indication: BLOOD PRESSURE
     Dosage: 1df:300/12.5mg tabs
     Route: 048
     Dates: start: 2007
  2. ATENOLOL TABS 100 MG [Concomitant]
     Indication: ARRHYTHMIA
     Dosage: 1df:1 tab
     Route: 048
     Dates: start: 2004
  3. MAREVAN [Concomitant]
     Indication: ANTICOAGULANT THERAPY
     Dosage: 1df:1/2 5mg tab
     Route: 048
     Dates: start: 2007
  4. PURAN T4 [Concomitant]
     Indication: THYROID DISORDER
     Dosage: 1df:25mcg/tabs
     Route: 048
  5. SIMVASTATIN TAB [Concomitant]
     Indication: BLOOD CHOLESTEROL ABNORMAL
     Route: 048
     Dates: start: 2007

REACTIONS (3)
  - Pancreatic duct obstruction [Not Recovered/Not Resolved]
  - Hepatitis A [Unknown]
  - Hepatitis C [Unknown]
